FAERS Safety Report 5680672-4 (Version None)
Quarter: 2008Q1

REPORT INFORMATION
  Report Type: 
  Country: None (occurrence: None)
  Receive Date: 20080326
  Receipt Date: 20071003
  Transmission Date: 20080703
  Serious: No
  Sender: FDA-Public Use
  Company Number: US-BAUSCH-2007BL003589

PATIENT
  Sex: Male

DRUGS (2)
  1. LOTEMAX [Suspect]
     Indication: DRUG USE FOR UNKNOWN INDICATION
     Route: 047
     Dates: start: 20070803, end: 20071002
  2. ANTI-DIABETICS [Concomitant]
     Indication: DIABETES MELLITUS

REACTIONS (1)
  - BLOOD GLUCOSE INCREASED [None]
